FAERS Safety Report 15341196 (Version 1)
Quarter: 2018Q3

REPORT INFORMATION
  Report Type: Report from Study
  Country: MX (occurrence: MX)
  Receive Date: 20180831
  Receipt Date: 20180831
  Transmission Date: 20181010
  Serious: Yes (Hospitalization)
  Sender: FDA-Public Use
  Company Number: PHHY2018MX083908

PATIENT
  Sex: Female

DRUGS (1)
  1. ENTRESTO [Suspect]
     Active Substance: SACUBITRIL\VALSARTAN
     Indication: PRODUCT USED FOR UNKNOWN INDICATION
     Dosage: 1 MG (50 MG), QD
     Route: 048
     Dates: start: 20180802

REACTIONS (3)
  - Drug prescribing error [Unknown]
  - Neoplasm malignant [Unknown]
  - Prescribed underdose [Unknown]
